FAERS Safety Report 8840651 (Version 1)
Quarter: 2012Q4

REPORT INFORMATION
  Report Type: Report from Study
  Country: FR (occurrence: FR)
  Receive Date: 20121015
  Receipt Date: 20121015
  Transmission Date: 20130627
  Serious: Yes (Hospitalization, Other)
  Sender: FDA-Public Use
  Company Number: FR-PFIZER INC-2012251451

PATIENT
  Age: 52 Year
  Sex: Male
  Weight: 82 kg

DRUGS (4)
  1. DOXORUBICIN HCL [Suspect]
     Indication: B-CELL LYMPHOMA
     Dosage: 100 mg, UNK
     Route: 042
     Dates: start: 20060228
  2. VINCRISTINE SULFATE [Suspect]
     Indication: B-CELL LYMPHOMA
     Dosage: 2 mg, UNK
     Route: 042
     Dates: start: 20060228
  3. ENDOXAN [Suspect]
     Indication: B-CELL LYMPHOMA
     Dosage: 1400 mg, UNK
     Dates: start: 20060228
  4. MABTHERA [Suspect]
     Indication: B-CELL LYMPHOMA
     Dosage: 725 mg, UNK
     Route: 042
     Dates: start: 20060228

REACTIONS (2)
  - Febrile bone marrow aplasia [Recovered/Resolved]
  - Pyrexia [Unknown]
